FAERS Safety Report 4970471-0 (Version None)
Quarter: 2006Q2

REPORT INFORMATION
  Report Type: 
  Country: None (occurrence: None)
  Receive Date: 20060411
  Receipt Date: 20060411
  Transmission Date: 20061013
  Serious: Yes (Death)
  Sender: FDA-Public Use
  Company Number: None

PATIENT
  Age: 52 Year
  Sex: Male
  Weight: 61.6892 kg

DRUGS (1)
  1. AMIODARONE HCL [Suspect]
     Indication: PREOPERATIVE CARE
     Dosage: IV DRIP
     Route: 041
     Dates: start: 20051229, end: 20051230

REACTIONS (2)
  - CARDIAC ARREST [None]
  - HEART RATE DECREASED [None]
